FAERS Safety Report 10177213 (Version 1)
Quarter: 2014Q2

REPORT INFORMATION
  Report Type: Spontaneous
  Country: DK (occurrence: DK)
  Receive Date: 20140516
  Receipt Date: 20140516
  Transmission Date: 20141212
  Serious: Yes (Hospitalization)
  Sender: FDA-Public Use
  Company Number: DK-AMGEN-DNKSP2014034692

PATIENT
  Age: 74 Year
  Sex: Female

DRUGS (6)
  1. NEULASTA [Suspect]
     Indication: BREAST CANCER
     Dosage: 6 MG
     Route: 065
     Dates: end: 201304
  2. DOCETAXEL ACTAVIS [Suspect]
     Indication: BREAST CANCER
     Dosage: 20 MG/ML
     Route: 065
     Dates: start: 201303, end: 201304
  3. EPIRUBICIN                         /00699302/ [Concomitant]
     Indication: BREAST CANCER
     Dosage: 2 MG/ML
     Dates: end: 20130423
  4. SENDOXAN [Concomitant]
     Indication: BREAST CANCER
     Dosage: UNK
     Dates: end: 20130423
  5. CEFUROXIME [Concomitant]
     Dosage: 400 MG, UNK
     Dates: start: 20130410, end: 20130410
  6. CIPROFLOXACIN [Concomitant]
     Dosage: UNK

REACTIONS (2)
  - Abdominal pain upper [Recovered/Resolved]
  - Dermatitis psoriasiform [Recovering/Resolving]
